FAERS Safety Report 21766458 (Version 1)
Quarter: 2022Q4

REPORT INFORMATION
  Report Type: Report from Study
  Country: US (occurrence: US)
  Receive Date: 20221222
  Receipt Date: 20221222
  Transmission Date: 20230112
  Serious: Yes (Death)
  Sender: FDA-Public Use
  Company Number: US-TEVA-2022-US-2837341

PATIENT
  Age: 31 Year
  Sex: Male

DRUGS (8)
  1. LEUPROLIDE [Suspect]
     Active Substance: LEUPROLIDE
     Indication: Scrotal cancer
     Route: 065
  2. LEUPROLIDE [Suspect]
     Active Substance: LEUPROLIDE
     Indication: Sweat gland tumour
  3. GEMCITABINE [Suspect]
     Active Substance: GEMCITABINE
     Indication: Scrotal cancer
     Route: 065
  4. GEMCITABINE [Suspect]
     Active Substance: GEMCITABINE
     Indication: Sweat gland tumour
  5. CARBOPLATIN [Suspect]
     Active Substance: CARBOPLATIN
     Indication: Scrotal cancer
     Route: 065
  6. CARBOPLATIN [Suspect]
     Active Substance: CARBOPLATIN
     Indication: Sweat gland tumour
  7. HERCEPTIN [Suspect]
     Active Substance: TRASTUZUMAB
     Indication: Scrotal cancer
     Route: 065
  8. HERCEPTIN [Suspect]
     Active Substance: TRASTUZUMAB
     Indication: Sweat gland tumour

REACTIONS (1)
  - Drug ineffective [Fatal]
